FAERS Safety Report 5647956-7 (Version None)
Quarter: 2008Q1

REPORT INFORMATION
  Report Type: 
  Country: None (occurrence: None)
  Receive Date: 20080229
  Receipt Date: 20071211
  Transmission Date: 20080703
  Serious: Yes (Other)
  Sender: FDA-Public Use
  Company Number: 2007S1009109

PATIENT
  Age: 66 Year
  Sex: Female

DRUGS (3)
  1. EZ PREP [Suspect]
     Indication: COLONOSCOPY
     Dosage: 45 ML; X1; PO
     Route: 048
     Dates: start: 20071029, end: 20071029
  2. GLYBURIDE [Concomitant]
  3. METFORMIN [Concomitant]

REACTIONS (6)
  - ANGIOEDEMA [None]
  - BLOOD PRESSURE INCREASED [None]
  - HYPERSENSITIVITY [None]
  - PRURITUS [None]
  - SWOLLEN TONGUE [None]
  - URTICARIA [None]
